FAERS Safety Report 9457904 (Version 3)
Quarter: 2013Q3

REPORT INFORMATION
  Report Type: Spontaneous
  Country: US (occurrence: US)
  Receive Date: 20130814
  Receipt Date: 20130918
  Transmission Date: 20140515
  Serious: Yes (Other)
  Sender: FDA-Public Use
  Company Number: US-ASTELLAS-2013US008428

PATIENT
  Age: 82 Year
  Sex: Female

DRUGS (1)
  1. VESICARE [Suspect]
     Indication: BLADDER DISORDER
     Dosage: UNK
     Route: 065

REACTIONS (2)
  - Drug ineffective [Unknown]
  - Nephrolithiasis [Recovered/Resolved]
